FAERS Safety Report 8415270-2 (Version None)
Quarter: 2012Q2

REPORT INFORMATION
  Report Type: 
  Country: None (occurrence: None)
  Receive Date: 20120606
  Receipt Date: 20120529
  Transmission Date: 20120825
  Serious: Yes (Other)
  Sender: FDA-Public Use
  Company Number: US-US-EMD SERONO, INC.-7025995

PATIENT
  Sex: Female

DRUGS (4)
  1. ARMOR [Concomitant]
     Indication: HYPOTHYROIDISM
     Dates: start: 20070101
  2. FLUOXETINE [Concomitant]
     Indication: DEPRESSION
     Dates: start: 20070101
  3. TOPAMAX [Concomitant]
     Indication: HEADACHE
     Dates: start: 20070101
  4. REBIF [Suspect]
     Indication: MULTIPLE SCLEROSIS
     Dates: start: 20071101

REACTIONS (2)
  - OPTIC NEURITIS [None]
  - OSTEOPENIA [None]
